FAERS Safety Report 9684419 (Version 1)
Quarter: 2013Q4

REPORT INFORMATION
  Report Type: Spontaneous
  Country: US (occurrence: US)
  Receive Date: 20131112
  Receipt Date: 20131112
  Transmission Date: 20140711
  Serious: No
  Sender: FDA-Public Use
  Company Number: US-PFIZER INC-2013319761

PATIENT
  Age: 75 Year
  Sex: Female
  Weight: 97.51 kg

DRUGS (3)
  1. LYRICA [Suspect]
     Indication: POST HERPETIC NEURALGIA
     Dosage: 50 MG, 2X/DAY
     Route: 048
     Dates: start: 2011
  2. LYRICA [Suspect]
     Indication: HERPES ZOSTER
     Dosage: 200 MG, 2X/DAY
     Route: 048
     Dates: start: 20131001
  3. LYRICA [Suspect]
     Dosage: 50 MG, 2X/DAY
     Route: 048

REACTIONS (3)
  - Gait disturbance [Unknown]
  - Drug intolerance [Unknown]
  - Drug ineffective [Unknown]
